FAERS Safety Report 11394807 (Version 1)
Quarter: 2015Q3

REPORT INFORMATION
  Report Type: Spontaneous
  Country: None (occurrence: None)
  Receive Date: 20150817
  Receipt Date: 20150817
  Transmission Date: 20151125
  Serious: No
  Sender: FDA-Public Use
  Company Number: None

PATIENT
  Age: 33 Year
  Sex: Female
  Weight: 54 kg

DRUGS (1)
  1. HARVONI [Suspect]
     Active Substance: LEDIPASVIR\SOFOSBUVIR
     Indication: CHRONIC HEPATITIS C
     Dosage: 28 PILLS PER BOTTLE; 3 BOTTLES
     Route: 048

REACTIONS (9)
  - Chest discomfort [None]
  - Pain [None]
  - Ear pain [None]
  - Dysgeusia [None]
  - Dizziness [None]
  - Headache [None]
  - Dry mouth [None]
  - Dyspnoea [None]
  - Fatigue [None]
